FAERS Safety Report 18163873 (Version 1)
Quarter: 2020Q3

REPORT INFORMATION
  Report Type: Spontaneous
  Country: US (occurrence: US)
  Receive Date: 20200818
  Receipt Date: 20200818
  Transmission Date: 20201103
  Serious: No
  Sender: FDA-Public Use
  Company Number: US-OTSUKA-2018_023290

PATIENT
  Age: 63 Year
  Sex: Male

DRUGS (4)
  1. ABILIFY [Suspect]
     Active Substance: ARIPIPRAZOLE
     Indication: AFFECTIVE DISORDER
     Dosage: 10 MG, UNK
     Route: 065
     Dates: end: 201801
  2. ABILIFY [Suspect]
     Active Substance: ARIPIPRAZOLE
     Indication: MAJOR DEPRESSION
     Dosage: 5 MG, UNK
     Route: 065
     Dates: start: 200809
  3. GABAPENTIN. [Concomitant]
     Active Substance: GABAPENTIN
     Indication: PRODUCT USED FOR UNKNOWN INDICATION
     Dosage: UNK
     Route: 065
  4. ARIPIPRAZOLE. [Concomitant]
     Active Substance: ARIPIPRAZOLE
     Indication: PRODUCT USED FOR UNKNOWN INDICATION
     Dosage: UNK
     Route: 065
     Dates: start: 20150724, end: 20171021

REACTIONS (17)
  - Fall [Unknown]
  - Economic problem [Unknown]
  - Sciatica [Unknown]
  - Compulsive shopping [Recovered/Resolved]
  - Dry mouth [Unknown]
  - Affective disorder [Unknown]
  - Arthralgia [Unknown]
  - Injury [Unknown]
  - Product use in unapproved indication [Unknown]
  - Balance disorder [Unknown]
  - Irritable bowel syndrome [Unknown]
  - Mental disorder [Unknown]
  - Obsessive-compulsive disorder [Unknown]
  - Tardive dyskinesia [Unknown]
  - Post-traumatic stress disorder [Unknown]
  - Attention deficit hyperactivity disorder [Unknown]
  - Sleep apnoea syndrome [Unknown]

NARRATIVE: CASE EVENT DATE: 20130101
